FAERS Safety Report 5144326-5 (Version None)
Quarter: 2006Q4

REPORT INFORMATION
  Report Type: 
  Country: None (occurrence: None)
  Receive Date: 20061030
  Receipt Date: 20061017
  Transmission Date: 20070319
  Serious: Yes (Other)
  Sender: FDA-Public Use
  Company Number: 2006128700

PATIENT
  Sex: Female

DRUGS (3)
  1. GEODON [Suspect]
     Indication: DEPRESSION
     Dosage: 40 MG (DAILY)
     Dates: end: 20061001
  2. LAMICTAL [Concomitant]
  3. CYMBALTA [Concomitant]

REACTIONS (2)
  - NASOPHARYNGEAL DISORDER [None]
  - PHARYNGEAL OEDEMA [None]
